FAERS Safety Report 5610439-4 (Version None)
Quarter: 2008Q1

REPORT INFORMATION
  Report Type: 
  Country: None (occurrence: None)
  Receive Date: 20080128
  Receipt Date: 20080111
  Transmission Date: 20080703
  Serious: Yes (Other)
  Sender: FDA-Public Use
  Company Number: 20080009 /

PATIENT
  Age: 81 Year
  Sex: Female
  Weight: 95.2554 kg

DRUGS (9)
  1. VENOFER [Suspect]
     Indication: NEPHROGENIC ANAEMIA
     Dosage: 200 MG OVER 17 MIN, INTRAVENOUS
     Route: 042
     Dates: start: 20071227, end: 20071227
  2. LASIX [Concomitant]
  3. METOPROLOL TARTRATE [Concomitant]
  4. SINGULAIR [Concomitant]
  5. COUMADIN [Concomitant]
  6. XOPENEX [Concomitant]
  7. AVAPRO [Concomitant]
  8. PROCRIT [Concomitant]
  9. FLUTICASONE PROPIONATE [Concomitant]

REACTIONS (4)
  - CONTUSION [None]
  - INTERNATIONAL NORMALISED RATIO INCREASED [None]
  - LIMB INJURY [None]
  - OEDEMA PERIPHERAL [None]
